FAERS Safety Report 9081017 (Version 1)
Quarter: 2013Q1

REPORT INFORMATION
  Report Type: Report from Study
  Country: US (occurrence: US)
  Receive Date: 20130130
  Receipt Date: 20130130
  Transmission Date: 20140127
  Serious: Yes (Hospitalization)
  Sender: FDA-Public Use
  Company Number: US-ABBOTT-12P-163-0955870-00

PATIENT
  Age: 33 Year
  Sex: Female

DRUGS (7)
  1. HUMIRA 40 MG/0.8 ML PEN [Suspect]
     Indication: CROHN^S DISEASE
     Dates: start: 20111021
  2. IMURAN [Concomitant]
     Indication: CROHN^S DISEASE
     Dosage: DAILY
     Route: 048
  3. PRILOSEC [Concomitant]
     Indication: GASTRIC ULCER
     Dosage: AT BED TIME
     Route: 048
  4. ULTRAM [Concomitant]
     Indication: PAIN
     Route: 048
  5. PHENERGAN [Concomitant]
     Indication: NAUSEA
  6. ALBUTEROL [Concomitant]
     Indication: ASTHMA
     Route: 055
  7. HYDROCODONE [Concomitant]
     Indication: PAIN
     Dosage: 5/325MG PO PRN
     Route: 048

REACTIONS (4)
  - Crohn^s disease [Recovered/Resolved]
  - Anaemia [Unknown]
  - Pyrexia [Unknown]
  - Chills [Unknown]
